FAERS Safety Report 4919718-7 (Version None)
Quarter: 2006Q1

REPORT INFORMATION
  Report Type: 
  Country: None (occurrence: None)
  Receive Date: 20060113
  Receipt Date: 20051014
  Transmission Date: 20060701
  Serious: No
  Sender: FDA-Public Use
  Company Number: 2005SP003522

PATIENT
  Age: 58 Year
  Sex: Male
  Weight: 113.3993 kg

DRUGS (11)
  1. LUNESTA [Suspect]
     Indication: MIDDLE INSOMNIA
     Dosage: 3 MG;HS;ORAL
     Route: 048
     Dates: start: 20050601, end: 20051001
  2. ACIPHEX [Concomitant]
  3. FUROSEMIDE [Concomitant]
  4. GABAPENTIN [Concomitant]
  5. ISOSORBIDE MONONITRATE [Concomitant]
  6. LISINOPRIL [Concomitant]
  7. METFORMIN HYDROCHLORIDE [Concomitant]
  8. AMLODIPINE BESYLATE [Concomitant]
  9. TOPROL-XL [Concomitant]
  10. VYTORIN [Concomitant]
  11. ZOLOFT [Concomitant]

REACTIONS (2)
  - DRUG INEFFECTIVE [None]
  - MIDDLE INSOMNIA [None]
